FAERS Safety Report 5709511-X (Version None)
Quarter: 2008Q2

REPORT INFORMATION
  Report Type: 
  Country: None (occurrence: None)
  Receive Date: 20080418
  Receipt Date: 20080416
  Transmission Date: 20081010
  Serious: Yes (Death)
  Sender: FDA-Public Use
  Company Number: US-GILEAD-2008-0016026

PATIENT
  Sex: Female

DRUGS (16)
  1. LETAIRIS [Suspect]
     Indication: PULMONARY HYPERTENSION
     Route: 048
     Dates: start: 20080129, end: 20080317
  2. XOPENEX [Concomitant]
     Route: 048
  3. ALBUTEROL [Concomitant]
     Route: 048
  4. ZETIA [Concomitant]
     Route: 048
  5. AMBIEN [Concomitant]
     Route: 048
  6. LEXAPRO [Concomitant]
     Route: 048
  7. POTASSIUM CHLORIDE [Concomitant]
     Route: 048
  8. FUROSEMIDE [Concomitant]
     Route: 048
  9. ATENOLOL [Concomitant]
     Route: 048
  10. WARFARIN SODIUM [Concomitant]
     Route: 048
  11. PREVACID [Concomitant]
     Route: 048
     Dates: start: 20071210
  12. CATAPRES-TTS-1 [Concomitant]
     Route: 048
     Dates: start: 20071210
  13. SIMVASTATIN [Concomitant]
     Route: 048
     Dates: start: 20071210
  14. AMLODIPINE BESYLATE [Concomitant]
     Route: 048
     Dates: start: 20080129
  15. ACIPHEX [Concomitant]
     Route: 048
     Dates: start: 20080129
  16. DETROL [Concomitant]
     Route: 048
     Dates: end: 20071210

REACTIONS (1)
  - PULMONARY HYPERTENSION [None]
